FAERS Safety Report 16240032 (Version 2)
Quarter: 2019Q3

REPORT INFORMATION
  Report Type: Spontaneous
  Country: US (occurrence: US)
  Receive Date: 20190425
  Receipt Date: 20190722
  Transmission Date: 20191004
  Serious: No
  Sender: FDA-Public Use
  Company Number: US-ALLERGAN-1848330US

PATIENT
  Age: 10 Year
  Sex: Female

DRUGS (2)
  1. TRIPTORELIN PAMOATE - BP [Suspect]
     Active Substance: TRIPTORELIN PAMOATE
     Dosage: SINGLE,1 IN 1 CYCLICAL
     Route: 030
     Dates: start: 20180720, end: 20180720
  2. TRIPTORELIN PAMOATE - BP [Suspect]
     Active Substance: TRIPTORELIN PAMOATE
     Indication: PRODUCT USED FOR UNKNOWN INDICATION
     Dosage: 22.5 MG
     Route: 030

REACTIONS (4)
  - Emotional disorder [Recovered/Resolved]
  - Anger [Unknown]
  - Abnormal behaviour [Unknown]
  - Belligerence [Unknown]

NARRATIVE: CASE EVENT DATE: 2018
